FAERS Safety Report 4985034-0 (Version None)
Quarter: 2006Q2

REPORT INFORMATION
  Report Type: 
  Country: None (occurrence: None)
  Receive Date: 20060421
  Receipt Date: 20060307
  Transmission Date: 20061013
  Serious: Yes (Other)
  Sender: FDA-Public Use
  Company Number: 2006R3-02026

PATIENT
  Age: 33 Year
  Sex: Female

DRUGS (1)
  1. AMOXICILLIN-CLAVULANATE. (AMOXICILLIN TRIHYDRATE) [Suspect]

REACTIONS (1)
  - ANAPHYLACTIC REACTION [None]
